FAERS Safety Report 8450718-9 (Version None)
Quarter: 2012Q2

REPORT INFORMATION
  Report Type: 
  Country: None (occurrence: None)
  Receive Date: 20120620
  Receipt Date: 20120615
  Transmission Date: 20120825
  Serious: Yes (Hospitalization)
  Sender: FDA-Public Use
  Company Number: FR-PFIZER INC-2012141023

PATIENT
  Age: 72 Year
  Sex: Female

DRUGS (12)
  1. ARESTAL [Concomitant]
  2. CITALOPRAM [Concomitant]
  3. ACEBUTOLOL [Concomitant]
  4. LOSARTAN [Concomitant]
  5. TRIHEXYPHENIDYL HYDROCHLORIDE [Concomitant]
  6. ALPRAZOLAM [Suspect]
     Dosage: UNK
     Route: 048
     Dates: start: 19900101, end: 20120202
  7. TERCIAN [Suspect]
     Indication: HALLUCINATION
     Dosage: 0.5 DF, 1X/DAY
     Route: 048
     Dates: start: 19900101, end: 20120120
  8. PANTOPRAZOLE [Concomitant]
  9. ALUMINUM HYDROXIDE AND MAGNESIUM TRISILICATE [Concomitant]
  10. ACETAMINOPHEN [Concomitant]
  11. AMISULPRIDE [Suspect]
     Indication: HALLUCINATION
     Dosage: 25 MG, 2X/DAY
     Route: 048
     Dates: start: 19900101, end: 20120120
  12. ZOLPIDEM [Concomitant]
     Dosage: UNK
     Route: 048
     Dates: start: 19900101

REACTIONS (2)
  - SLEEP APNOEA SYNDROME [None]
  - CONDITION AGGRAVATED [None]
